FAERS Safety Report 23414427 (Version 3)
Quarter: 2024Q2

REPORT INFORMATION
  Report Type: Spontaneous
  Country: JP (occurrence: JP)
  Receive Date: 20240118
  Receipt Date: 20240430
  Transmission Date: 20240716
  Serious: Yes (Life-Threatening, Hospitalization, Other)
  Sender: FDA-Public Use
  Company Number: JP-Merck Healthcare KGaA-2024002008

PATIENT
  Age: 68 Year
  Sex: Female
  Weight: 41 kg

DRUGS (4)
  1. METGLUCO [Suspect]
     Active Substance: METFORMIN HYDROCHLORIDE
     Indication: Type 2 diabetes mellitus
     Dosage: 3 TABLETS OF 250 MG
     Route: 048
     Dates: start: 20170904, end: 20240110
  2. METGLUCO [Suspect]
     Active Substance: METFORMIN HYDROCHLORIDE
     Route: 048
     Dates: start: 20240109, end: 20240109
  3. JARDIANCE [Suspect]
     Active Substance: EMPAGLIFLOZIN
     Indication: Product used for unknown indication
     Dates: start: 20210906, end: 20240110
  4. RYBELSUS [Suspect]
     Active Substance: SEMAGLUTIDE
     Indication: Product used for unknown indication
     Dates: start: 20220822, end: 20240110

REACTIONS (9)
  - Intentional self-injury [Unknown]
  - Lactic acidosis [Recovering/Resolving]
  - Intentional overdose [Unknown]
  - Pneumonia bacterial [Recovering/Resolving]
  - Pneumothorax [Recovering/Resolving]
  - Dehydration [Unknown]
  - Dementia [Unknown]
  - Pneumonia fungal [Unknown]
  - Glycosylated haemoglobin increased [Unknown]

NARRATIVE: CASE EVENT DATE: 20240105
